FAERS Safety Report 4967325-2 (Version None)
Quarter: 2006Q2

REPORT INFORMATION
  Report Type: 
  Country: None (occurrence: None)
  Receive Date: 20060410
  Receipt Date: 20060331
  Transmission Date: 20061013
  Serious: Yes (Other)
  Sender: FDA-Public Use
  Company Number: US-JNJFOC-20060400993

PATIENT
  Sex: Female
  Weight: 80.74 kg

DRUGS (6)
  1. DURAGESIC-100 [Suspect]
     Route: 062
  2. EFFEXOR [Concomitant]
     Indication: DEPRESSION
  3. KLONAPIN [Concomitant]
     Indication: NERVOUSNESS
  4. SEROQUEL [Concomitant]
     Indication: SLEEP DISORDER
  5. LORTAB [Concomitant]
  6. LORTAB [Concomitant]
     Indication: PAIN

REACTIONS (1)
  - CONVULSION [None]
